FAERS Safety Report 15367812 (Version 2)
Quarter: 2018Q3

REPORT INFORMATION
  Report Type: Spontaneous
  Country: US (occurrence: US)
  Receive Date: 20180910
  Receipt Date: 20180920
  Transmission Date: 20181010
  Serious: Yes (Hospitalization)
  Sender: FDA-Public Use
  Company Number: US-PFIZER INC-2017160953

PATIENT
  Age: 23 Year
  Sex: Male

DRUGS (2)
  1. GENOTROPIN [Suspect]
     Active Substance: SOMATROPIN
     Indication: HYPOPITUITARISM
  2. GENOTROPIN [Suspect]
     Active Substance: SOMATROPIN
     Indication: CRANIOCEREBRAL INJURY
     Dosage: 0.4 MG, 1X/DAY
     Route: 058

REACTIONS (3)
  - Incorrect dose administered [Unknown]
  - Device issue [Unknown]
  - Aggression [Unknown]
